FAERS Safety Report 8719423 (Version 4)
Quarter: 2012Q4

REPORT INFORMATION
  Report Type: 
  Country: BR (occurrence: BR)
  Receive Date: 20120813
  Receipt Date: 20120905
  Transmission Date: 20130627
  Serious: Yes (Hospitalization)
  Sender: FDA-Public Use
  Company Number: BR-US-EMD SERONO, INC.-7153231

PATIENT
  Age: 40 Year
  Sex: Female

DRUGS (6)
  1. REBIF [Suspect]
     Indication: RELAPSING-REMITTING MULTIPLE SCLEROSIS
     Dates: start: 20120410
  2. GABAPENTINE [Concomitant]
     Indication: PAIN
  3. GABAPENTINE [Concomitant]
     Indication: MUSCLE SPASTICITY
  4. BACLOFEN [Concomitant]
     Indication: MUSCLE SPASTICITY
  5. SIDALUD (SIRDALUD) [Concomitant]
     Indication: MUSCLE RELAXANT THERAPY
  6. OMEPRAZOLE [Concomitant]
     Indication: ABDOMINAL DISCOMFORT

REACTIONS (6)
  - Urinary tract infection [Recovering/Resolving]
  - Multiple sclerosis relapse [Recovering/Resolving]
  - Eye pain [Recovering/Resolving]
  - Neck pain [Not Recovered/Not Resolved]
  - Headache [Not Recovered/Not Resolved]
  - Immune system disorder [Not Recovered/Not Resolved]
